FAERS Safety Report 10455533 (Version 1)
Quarter: 2014Q3

REPORT INFORMATION
  Report Type: Spontaneous
  Country: US (occurrence: None)
  Receive Date: 20140915
  Receipt Date: 20140915
  Transmission Date: 20150326
  Serious: No
  Sender: FDA-Public Use
  Company Number: None

PATIENT
  Age: 35 Year
  Sex: Female
  Weight: 106.6 kg

DRUGS (1)
  1. COPAXONE [Suspect]
     Active Substance: GLATIRAMER ACETATE
     Indication: MULTIPLE SCLEROSIS
     Dosage: 1 SYRINGE, THREE TIMES A WEEK, GIVEN INTO/UNDER THE SKIN
     Route: 058

REACTIONS (3)
  - Dyspnoea [None]
  - Presyncope [None]
  - Arthropathy [None]

NARRATIVE: CASE EVENT DATE: 20140912
